FAERS Safety Report 7773797-0 (Version None)
Quarter: 2011Q3

REPORT INFORMATION
  Report Type: 
  Country: None (occurrence: None)
  Receive Date: 20110923
  Receipt Date: 20110917
  Transmission Date: 20111222
  Serious: Yes (Other)
  Sender: FDA-Public Use
  Company Number: US-JNJFOC-20110908071

PATIENT

DRUGS (1)
  1. STELARA [Suspect]
     Indication: ILL-DEFINED DISORDER
     Dosage: 1 YEAR
     Route: 058

REACTIONS (1)
  - MALIGNANT MELANOMA [None]
